FAERS Safety Report 11633505 (Version 1)
Quarter: 2015Q4

REPORT INFORMATION
  Report Type: Report from Study
  Country: US (occurrence: US)
  Receive Date: 20151015
  Receipt Date: 20151015
  Transmission Date: 20160304
  Serious: Yes (Death, Hospitalization, Other)
  Sender: FDA-Public Use
  Company Number: US-009507513-1510USA006561

PATIENT
  Age: 49 Year
  Sex: Male
  Weight: 81.4 kg

DRUGS (14)
  1. RUXOLITINIB [Suspect]
     Active Substance: RUXOLITINIB
     Indication: NON-SMALL CELL LUNG CANCER
     Dosage: 15 MG, BID
     Route: 048
     Dates: start: 20150506
  2. LORAZEPAM. [Concomitant]
     Active Substance: LORAZEPAM
     Dosage: UNK
  3. EMEND [Suspect]
     Active Substance: APREPITANT
     Dosage: 150(UNITS NOT REPORTED), REGIMEN: 1
  4. ULTRAM [Concomitant]
     Active Substance: TRAMADOL HYDROCHLORIDE
     Dosage: UNK
  5. CYANOCOBALAMIN. [Concomitant]
     Active Substance: CYANOCOBALAMIN
     Dosage: UNK
  6. AMLODIPINE BESYLATE. [Concomitant]
     Active Substance: AMLODIPINE BESYLATE
     Dosage: UNK
     Dates: start: 20150414
  7. HYDROCHLOROTHIAZIDE. [Concomitant]
     Active Substance: HYDROCHLOROTHIAZIDE
     Dosage: UNK
     Route: 048
     Dates: start: 20150407
  8. ZOLPIDEM [Concomitant]
     Active Substance: ZOLPIDEM\ZOLPIDEM TARTRATE
     Dosage: UNK
     Dates: start: 20150605
  9. CISPLATIN. [Suspect]
     Active Substance: CISPLATIN
     Indication: NON-SMALL CELL LUNG CANCER
     Dosage: 75 MG/M2, UNK, REGIMEN: 1
     Route: 042
     Dates: start: 20150506
  10. PROCHLORPERAZINE. [Concomitant]
     Active Substance: PROCHLORPERAZINE
     Dosage: UNK
  11. THIAMINE HYDROCHLORIDE. [Concomitant]
     Active Substance: THIAMINE HYDROCHLORIDE
     Dosage: UNK
  12. FOLIC ACID. [Concomitant]
     Active Substance: FOLIC ACID
     Dosage: UNK
  13. PEMETREXED DISODIUM [Suspect]
     Active Substance: PEMETREXED DISODIUM
     Indication: NON-SMALL CELL LUNG CANCER
     Dosage: 500 MG/M2, UNK
     Route: 042
     Dates: start: 20150506
  14. CLONIDINE. [Concomitant]
     Active Substance: CLONIDINE
     Dosage: UNK
     Dates: start: 20150610

REACTIONS (4)
  - Anaemia [Fatal]
  - Pulmonary embolism [Fatal]
  - Febrile neutropenia [Recovered/Resolved]
  - Dyspnoea [Fatal]

NARRATIVE: CASE EVENT DATE: 20150715
